FAERS Safety Report 6883293-0 (Version None)
Quarter: 2010Q3

REPORT INFORMATION
  Report Type: 
  Country: None (occurrence: None)
  Receive Date: 20100727
  Receipt Date: 20080414
  Transmission Date: 20110219
  Serious: Yes (Death, Hospitalization, Other)
  Sender: FDA-Public Use
  Company Number: US-PFIZER INC-2006062858

PATIENT
  Sex: Male
  Weight: 95.3 kg

DRUGS (3)
  1. CELEBREX [Suspect]
     Indication: NERVE COMPRESSION
     Dosage: 1 OR 2 TIMES PER DAY
     Dates: end: 20021005
  2. CELEBREX [Suspect]
     Indication: SPINAL COMPRESSION FRACTURE
  3. CELEBREX [Suspect]
     Indication: ARTHRITIS

REACTIONS (3)
  - ANGINA UNSTABLE [None]
  - MYOCARDIAL INFARCTION [None]
  - RENAL FAILURE [None]
